FAERS Safety Report 23037078 (Version 1)
Quarter: 2023Q4

REPORT INFORMATION
  Report Type: Spontaneous
  Country: GB (occurrence: GB)
  Receive Date: 20231006
  Receipt Date: 20231006
  Transmission Date: 20240110
  Serious: Yes (Hospitalization, Other)
  Sender: FDA-Public Use
  Company Number: GB-ABBVIE-5432515

PATIENT
  Age: 40 Year
  Sex: Male

DRUGS (2)
  1. MORPHINE SULFATE [Suspect]
     Active Substance: MORPHINE SULFATE
     Indication: Breakthrough pain
     Dosage: 60 PACKS
     Route: 048
  2. MORPHINE [Suspect]
     Active Substance: MORPHINE
     Indication: Breakthrough pain
     Dosage: TWO EMPTY BOTTLES OF 10MG/5ML MORPHINE SOLUTION (200ML IN TOTAL)
     Route: 065

REACTIONS (2)
  - Toxic leukoencephalopathy [Recovering/Resolving]
  - Intentional overdose [Recovered/Resolved]
